FAERS Safety Report 5894851-4 (Version None)
Quarter: 2008Q3

REPORT INFORMATION
  Report Type: 
  Country: None (occurrence: None)
  Receive Date: 20080924
  Receipt Date: 20080630
  Transmission Date: 20090109
  Serious: No
  Sender: FDA-Public Use
  Company Number: US-ASTRAZENECA-2008UW13139

PATIENT
  Age: 456 Month
  Sex: Female

DRUGS (2)
  1. SEROQUEL [Suspect]
     Indication: BIPOLAR DISORDER
     Dosage: 300 MG
     Route: 048
     Dates: start: 20080620, end: 20080601
  2. LEXAPREL [Concomitant]
     Indication: MOOD SWINGS

REACTIONS (10)
  - ANXIETY [None]
  - BELLIGERENCE [None]
  - COGNITIVE DISORDER [None]
  - CONFUSIONAL STATE [None]
  - FEELING OF BODY TEMPERATURE CHANGE [None]
  - HEAD TITUBATION [None]
  - PILOERECTION [None]
  - SOMNOLENCE [None]
  - SPEECH DISORDER [None]
  - TREMOR [None]
